FAERS Safety Report 18247599 (Version 3)
Quarter: 2023Q2

REPORT INFORMATION
  Report Type: Report from Study
  Country: US (occurrence: US)
  Receive Date: 20200909
  Receipt Date: 20230630
  Transmission Date: 20230721
  Serious: Yes (Hospitalization, Other)
  Sender: FDA-Public Use
  Company Number: US-GW PHARMA-202009USGW03018

PATIENT

DRUGS (7)
  1. EPIDIOLEX [Suspect]
     Active Substance: CANNABIDIOL
     Indication: Lennox-Gastaut syndrome
     Dosage: 250 MILLIGRAM, BID
     Route: 048
     Dates: start: 20191121
  2. EPIDIOLEX [Suspect]
     Active Substance: CANNABIDIOL
     Indication: Seizure
     Dosage: ADDITIONAL LOT NUMBER ADDED
  3. EPIDIOLEX [Suspect]
     Active Substance: CANNABIDIOL
     Dosage: ADDITIONAL LOT NUMBER ADDED
  4. EPIDIOLEX [Suspect]
     Active Substance: CANNABIDIOL
     Dosage: ADDITIONAL LOT NUMBER ADDEDUNK
  5. EPIDIOLEX [Suspect]
     Active Substance: CANNABIDIOL
     Dosage: ADDITIONAL LOT NUMBER ADDEDUNK
  6. EPIDIOLEX [Suspect]
     Active Substance: CANNABIDIOL
     Dosage: ADDITIONAL LOT NUMBER ADDEDUNK
  7. EPIDIOLEX [Suspect]
     Active Substance: CANNABIDIOL
     Dosage: 3.5 MILLILITER, BID
     Route: 048
     Dates: start: 20220711

REACTIONS (7)
  - Seizure [Recovered/Resolved]
  - Seizure [Recovered/Resolved]
  - Seizure [Not Recovered/Not Resolved]
  - Seizure [Unknown]
  - Vomiting [Unknown]
  - Diarrhoea [Unknown]
  - Pyrexia [Unknown]

NARRATIVE: CASE EVENT DATE: 20200829
